FAERS Safety Report 18052004 (Version 1)
Quarter: 2020Q3

REPORT INFORMATION
  Report Type: Spontaneous
  Country: DE (occurrence: DE)
  Receive Date: 20200721
  Receipt Date: 20200721
  Transmission Date: 20201103
  Serious: Yes (Other)
  Sender: FDA-Public Use
  Company Number: DE-BAUSCH-BL-2020-019973

PATIENT
  Age: 80 Year
  Sex: Female

DRUGS (18)
  1. BETAMETHASONE VALERATE. [Suspect]
     Active Substance: BETAMETHASONE VALERATE
     Indication: NEURODERMATITIS
     Route: 061
     Dates: start: 2015, end: 2016
  2. BETAMETHASONE VALERATE. [Suspect]
     Active Substance: BETAMETHASONE VALERATE
     Route: 061
     Dates: start: 2016, end: 2016
  3. GABAPENTIN. [Suspect]
     Active Substance: GABAPENTIN
     Indication: NEURODERMATITIS
     Route: 065
     Dates: start: 201711, end: 201807
  4. CYCLOSPORINE A [Suspect]
     Active Substance: CYCLOSPORINE
     Route: 065
     Dates: start: 201807, end: 201808
  5. PIMECROLIMUS. [Suspect]
     Active Substance: PIMECROLIMUS
     Indication: NEURODERMATITIS
     Route: 061
     Dates: start: 2017, end: 2018
  6. PREDNICARBATE. [Suspect]
     Active Substance: PREDNICARBATE
     Indication: NEURODERMATITIS
     Route: 061
  7. METHOTREXATE. [Suspect]
     Active Substance: METHOTREXATE
     Indication: NEURODERMATITIS
     Route: 065
     Dates: start: 2018
  8. BETAMETHASONE VALERATE. [Suspect]
     Active Substance: BETAMETHASONE VALERATE
     Route: 061
     Dates: start: 2017, end: 2018
  9. PREDNISOLONE. [Suspect]
     Active Substance: PREDNISOLONE
     Indication: NEURODERMATITIS
     Route: 048
     Dates: start: 201804, end: 201804
  10. PAROXETINE HYDROCHLORIDE. [Suspect]
     Active Substance: PAROXETINE HYDROCHLORIDE
     Indication: NEURODERMATITIS
     Route: 065
     Dates: start: 201708, end: 201806
  11. TACROLIMUS. [Suspect]
     Active Substance: TACROLIMUS
     Indication: NEURODERMATITIS
     Route: 061
  12. CYCLOSPORINE A [Suspect]
     Active Substance: CYCLOSPORINE
     Indication: NEURODERMATITIS
     Route: 065
     Dates: start: 201604, end: 201806
  13. DESLORATADINE. [Concomitant]
     Active Substance: DESLORATADINE
     Indication: PRODUCT USED FOR UNKNOWN INDICATION
     Route: 065
  14. MOMETASONE FUROATE. [Suspect]
     Active Substance: MOMETASONE FUROATE
     Indication: NEURODERMATITIS
     Route: 061
     Dates: start: 2017, end: 2018
  15. CLOBETASOL PROPIONATE. [Suspect]
     Active Substance: CLOBETASOL PROPIONATE
     Indication: DERMATITIS ATOPIC
     Route: 061
  16. CLOBETASOL PROPIONATE. [Suspect]
     Active Substance: CLOBETASOL PROPIONATE
     Indication: NEURODERMATITIS
     Route: 061
  17. CLOBETASOL PROPIONATE. [Suspect]
     Active Substance: CLOBETASOL PROPIONATE
     Route: 061
  18. MIRTAZAPINE. [Suspect]
     Active Substance: MIRTAZAPINE
     Indication: NEURODERMATITIS
     Route: 065
     Dates: start: 201604, end: 201806

REACTIONS (2)
  - Off label use [Unknown]
  - Intraductal papillary mucinous neoplasm [Not Recovered/Not Resolved]

NARRATIVE: CASE EVENT DATE: 2018
